FAERS Safety Report 18649085 (Version 1)
Quarter: 2020Q4

REPORT INFORMATION
  Report Type: Spontaneous
  Country: US (occurrence: US)
  Receive Date: 20201221
  Receipt Date: 20201221
  Transmission Date: 20210114
  Serious: No
  Sender: FDA-Public Use
  Company Number: None

PATIENT
  Age: 59 Year
  Sex: Male
  Weight: 103.42 kg

DRUGS (1)
  1. METFORMIN (METFORMIN HCL 500MG TAB,SA) [Suspect]
     Active Substance: METFORMIN HYDROCHLORIDE
     Indication: DIABETES MELLITUS
     Dates: start: 20190311, end: 20200806

REACTIONS (1)
  - Burning sensation [None]

NARRATIVE: CASE EVENT DATE: 20200806
